FAERS Safety Report 13523753 (Version 1)
Quarter: 2017Q2

REPORT INFORMATION
  Report Type: Spontaneous
  Country: US (occurrence: US)
  Receive Date: 20170508
  Receipt Date: 20170508
  Transmission Date: 20170830
  Serious: No
  Sender: FDA-Public Use
  Company Number: US-VIFOR (INTERNATIONAL) INC.-VIT-2017-03159

PATIENT
  Sex: Male

DRUGS (11)
  1. METRONIDAZOLE. [Concomitant]
     Active Substance: METRONIDAZOLE
  2. CLONIDINE. [Concomitant]
     Active Substance: CLONIDINE
  3. FISH OIL [Concomitant]
     Active Substance: FISH OIL
  4. COLECALCIFEROL [Concomitant]
     Active Substance: CHOLECALCIFEROL
  5. AMLODIPINE [Concomitant]
     Active Substance: AMLODIPINE BESYLATE
  6. HUMULIN NOS [Concomitant]
     Active Substance: INSULIN HUMAN
  7. MAGNESIUM [Concomitant]
     Active Substance: MAGNESIUM
  8. ACETYLSALICYLIC ACID [Concomitant]
     Active Substance: ASPIRIN
  9. VELTASSA [Suspect]
     Active Substance: PATIROMER
     Indication: HYPERKALAEMIA
     Route: 048
     Dates: start: 20170228
  10. SIMVASTATIN. [Concomitant]
     Active Substance: SIMVASTATIN
  11. BACTRIUM [Concomitant]

REACTIONS (1)
  - Constipation [Not Recovered/Not Resolved]

NARRATIVE: CASE EVENT DATE: 2017
